FAERS Safety Report 16140673 (Version 2)
Quarter: 2019Q2

REPORT INFORMATION
  Report Type: Spontaneous
  Country: SK (occurrence: SK)
  Receive Date: 20190401
  Receipt Date: 20190405
  Transmission Date: 20190711
  Serious: Yes (Hospitalization, Other)
  Sender: FDA-Public Use
  Company Number: SK-SA-2019SA086144

PATIENT
  Age: 67 Year
  Sex: Female

DRUGS (6)
  1. EBRANTIL [URAPIDIL] [Concomitant]
     Active Substance: URAPIDIL
     Indication: HYPERTENSION
     Dosage: 1 DF, BID (60 MG)
     Route: 048
     Dates: start: 20190315
  2. ASA [Concomitant]
     Active Substance: ASPIRIN
     Dosage: 100 MG
     Route: 048
     Dates: start: 20190315
  3. PRALUENT [Suspect]
     Active Substance: ALIROCUMAB
     Indication: HYPERCHOLESTEROLAEMIA
     Dosage: 75 MG, QOW
     Route: 058
     Dates: start: 20181004
  4. CARZAP HCT [Concomitant]
     Indication: HYPERTENSION
     Dosage: 1 DF, BID (16/12.5 MG)
     Route: 048
     Dates: start: 20190315
  5. MIXOR [Concomitant]
     Indication: HYPERTENSION
     Dosage: 80/10 MG, QD
     Route: 048
     Dates: start: 20190211
  6. BETALOC [METOPROLOL SUCCINATE] [Concomitant]
     Indication: HYPERTENSION
     Dosage: 2 DF, BID (25 MG)
     Route: 048
     Dates: start: 20190315

REACTIONS (4)
  - Diarrhoea [Recovered/Resolved]
  - Hypertensive crisis [Recovered/Resolved]
  - Swelling of eyelid [Recovered/Resolved]
  - Blood pressure increased [Not Recovered/Not Resolved]

NARRATIVE: CASE EVENT DATE: 201812
